APPROVED DRUG PRODUCT: CLEOCIN PHOSPHATE
Active Ingredient: CLINDAMYCIN PHOSPHATE
Strength: EQ 150MG BASE/ML
Dosage Form/Route: INJECTABLE;INJECTION
Application: A061839 | Product #001
Applicant: PHARMACIA AND UPJOHN CO
Approved: Approved Prior to Jan 1, 1982 | RLD: No | RS: No | Type: DISCN